FAERS Safety Report 13192609 (Version 1)
Quarter: 2017Q1

REPORT INFORMATION
  Report Type: Spontaneous
  Country: US (occurrence: US)
  Receive Date: 20170207
  Receipt Date: 20170207
  Transmission Date: 20170428
  Serious: Yes (Other)
  Sender: FDA-Public Use
  Company Number: None

PATIENT
  Age: 18 Year
  Sex: Male

DRUGS (5)
  1. CLINDAMYCIN HCL 300MG [Suspect]
     Active Substance: CLINDAMYCIN HYDROCHLORIDE
     Indication: ABSCESS
     Route: 048
     Dates: start: 20161125, end: 20161201
  2. DAN ACTIVE [Concomitant]
  3. CLONIDINE. [Concomitant]
     Active Substance: CLONIDINE
  4. GUMMIES MULTIVITAMIN [Concomitant]
  5. EMERGEN C [Concomitant]
     Active Substance: MINERALS\VITAMINS

REACTIONS (3)
  - Abdominal pain upper [None]
  - Blood urine present [None]
  - Penile pain [None]

NARRATIVE: CASE EVENT DATE: 20170106
